FAERS Safety Report 7815532-3 (Version None)
Quarter: 2011Q4

REPORT INFORMATION
  Report Type: 
  Country: None (occurrence: None)
  Receive Date: 20111014
  Receipt Date: 20111005
  Transmission Date: 20120403
  Serious: Yes (Other)
  Sender: FDA-Public Use
  Company Number: US-CELGENEUS-163-21880-11100770

PATIENT
  Sex: Female

DRUGS (10)
  1. REVLIMID [Suspect]
     Indication: MULTIPLE MYELOMA
     Dosage: 15 MILLIGRAM
     Route: 048
     Dates: start: 20110801
  2. WELLBUTRIN [Concomitant]
     Route: 065
  3. ARNICA [Concomitant]
     Route: 065
  4. LEVOTHYROXINE SODIUM [Concomitant]
     Route: 065
  5. ZOLOFT [Concomitant]
     Route: 065
  6. REVLIMID [Suspect]
     Dosage: 10 MILLIGRAM
     Route: 048
     Dates: start: 20110907
  7. BUSPIRONE HCL [Concomitant]
     Route: 065
  8. NUVIGIL [Concomitant]
     Route: 065
  9. PANTOPRAZOLE [Concomitant]
     Route: 065
  10. SEROQUEL [Concomitant]
     Route: 065

REACTIONS (8)
  - FALL [None]
  - DYSPNOEA [None]
  - ABDOMINAL DISCOMFORT [None]
  - PAIN [None]
  - HAEMATOMA [None]
  - ARTHROPATHY [None]
  - CONTUSION [None]
  - FATIGUE [None]
